FAERS Safety Report 13176629 (Version 1)
Quarter: 2017Q1

REPORT INFORMATION
  Report Type: Spontaneous
  Country: US (occurrence: US)
  Receive Date: 20170201
  Receipt Date: 20170201
  Transmission Date: 20170428
  Serious: Yes (Other)
  Sender: FDA-Public Use
  Company Number: US-SA-2017SA015804

PATIENT
  Age: 80 Year
  Sex: Female

DRUGS (15)
  1. OXYBUTYNIN [Concomitant]
     Active Substance: OXYBUTYNIN
  2. SERTRALINE [Concomitant]
     Active Substance: SERTRALINE HYDROCHLORIDE
  3. ALIROCUMAB PREFILLED PEN [Concomitant]
     Active Substance: ALIROCUMAB
     Dates: start: 201609, end: 20161107
  4. AZELASTINE [Concomitant]
     Active Substance: AZELASTINE
     Dosage: NASAL SPRAY
     Route: 045
  5. QVAR [Concomitant]
     Active Substance: BECLOMETHASONE DIPROPIONATE
  6. ASPIRIN. [Concomitant]
     Active Substance: ASPIRIN
  7. ATENOLOL. [Concomitant]
     Active Substance: ATENOLOL
  8. VALSARTAN. [Concomitant]
     Active Substance: VALSARTAN
     Dates: start: 20161123, end: 20161209
  9. WELCHOL [Concomitant]
     Active Substance: COLESEVELAM HYDROCHLORIDE
  10. ZETIA [Concomitant]
     Active Substance: EZETIMIBE
  11. TRAVATAN [Concomitant]
     Active Substance: TRAVOPROST
  12. LISINOPRIL. [Concomitant]
     Active Substance: LISINOPRIL
     Dates: end: 20161123
  13. PRALUENT [Suspect]
     Active Substance: ALIROCUMAB
     Indication: HYPERCHOLESTEROLAEMIA
     Route: 065
     Dates: start: 201609, end: 20161107
  14. COLACE [Concomitant]
     Active Substance: DOCUSATE SODIUM
  15. CRESTOR [Concomitant]
     Active Substance: ROSUVASTATIN CALCIUM

REACTIONS (5)
  - Night sweats [Recovered/Resolved]
  - Nightmare [Recovered/Resolved]
  - Angioedema [Recovered/Resolved]
  - Vulvovaginal swelling [Recovered/Resolved]
  - Urticaria [Recovered/Resolved]

NARRATIVE: CASE EVENT DATE: 201612
